FAERS Safety Report 7200628-X (Version None)
Quarter: 2010Q4

REPORT INFORMATION
  Report Type: 
  Country: None (occurrence: None)
  Receive Date: 20101228
  Receipt Date: 20101223
  Transmission Date: 20110411
  Serious: Yes (Life-Threatening, Hospitalization)
  Sender: FDA-Public Use
  Company Number: DK-MYLANLABS-2010S1022898

PATIENT
  Age: 62 Year
  Sex: Male

DRUGS (9)
  1. IBUPROFEN [Suspect]
     Indication: PAIN
     Dates: start: 20090701, end: 20100111
  2. AFINITOR [Interacting]
     Indication: RENAL CANCER
     Dosage: 10 MILLIGRAM(S)
     Dates: start: 20091117, end: 20100108
  3. OLMETEC [Interacting]
     Indication: HYPERTENSION
     Dosage: 40 MILLIGRAM(S)
     Dates: start: 20080101, end: 20100111
  4. IMOCLONE [Concomitant]
     Indication: INSOMNIA
     Dosage: 7.5 MILLIGRAM(S)
  5. CENTYL [Concomitant]
     Indication: HYPERTENSION
     Dates: end: 20100115
  6. PANTOLOC [Concomitant]
     Indication: PRODUCT USED FOR UNKNOWN INDICATION
     Dosage: 40 MILLIGRAM(S)
  7. OXYCONTIN [Concomitant]
     Indication: PAIN
     Dosage: 10 MILLIGRAM(S)
  8. OXYCODONE HCL [Concomitant]
     Indication: PAIN
     Dosage: 5 MILLIGRAM(S)
  9. ALOPAM [Concomitant]
     Indication: SEDATIVE THERAPY
     Dosage: 10 MILLIGRAM(S)

REACTIONS (3)
  - DRUG INTERACTION [None]
  - RASH [None]
  - RENAL FAILURE [None]
